FAERS Safety Report 17016877 (Version 2)
Quarter: 2020Q1

REPORT INFORMATION
  Report Type: Spontaneous
  Country: JP (occurrence: JP)
  Receive Date: 20191111
  Receipt Date: 20200218
  Transmission Date: 20200409
  Serious: Yes (Hospitalization, Other)
  Sender: FDA-Public Use
  Company Number: JP-PFIZER INC-2019480769

PATIENT
  Age: 8 Decade
  Sex: Male

DRUGS (1)
  1. LORLATINIB [Suspect]
     Active Substance: LORLATINIB
     Indication: LUNG ADENOCARCINOMA RECURRENT
     Dosage: UNK
     Route: 048

REACTIONS (1)
  - Non-cardiogenic pulmonary oedema [Recovering/Resolving]
